FAERS Safety Report 16809132 (Version 1)
Quarter: 2019Q3

REPORT INFORMATION
  Report Type: Spontaneous
  Country: CA (occurrence: CA)
  Receive Date: 20190916
  Receipt Date: 20190916
  Transmission Date: 20191005
  Serious: Yes (Life-Threatening, Hospitalization, Other)
  Sender: FDA-Public Use
  Company Number: CA-MYLANLABS-2019M1087102

PATIENT
  Age: 29 Year
  Sex: Male

DRUGS (3)
  1. ESTRADIOL. [Suspect]
     Active Substance: ESTRADIOL
     Indication: TRANSGENDER HORMONAL THERAPY
     Dosage: 4 MILLIGRAM, BID
     Route: 060
  2. PROPECIA [Suspect]
     Active Substance: FINASTERIDE
     Indication: TRANSGENDER HORMONAL THERAPY
     Dosage: 1 MILLIGRAM, QD
  3. CYPROTERONE ACETATE [Suspect]
     Active Substance: CYPROTERONE ACETATE
     Indication: TRANSGENDER HORMONAL THERAPY
     Dosage: 25 MILLIGRAM, QD

REACTIONS (2)
  - Arrhythmia [Unknown]
  - Ventricular extrasystoles [Unknown]
